FAERS Safety Report 11075842 (Version 3)
Quarter: 2015Q2

REPORT INFORMATION
  Report Type: Spontaneous
  Country: US (occurrence: US)
  Receive Date: 20150429
  Receipt Date: 20150603
  Transmission Date: 20150821
  Serious: Yes (Hospitalization)
  Sender: FDA-Public Use
  Company Number: US-009507513-1504USA020590

PATIENT
  Sex: Female

DRUGS (2)
  1. DULERA [Suspect]
     Active Substance: FORMOTEROL FUMARATE DIHYDRATE\MOMETASONE FUROATE
     Indication: ASTHMA
     Dosage: 100/5 MCG 2 PUFFS TWICE DAILY
     Route: 055
     Dates: start: 201304, end: 201501
  2. DULERA [Suspect]
     Active Substance: FORMOTEROL FUMARATE DIHYDRATE\MOMETASONE FUROATE
     Dosage: DOSE INCREASED FROM 100 MCG TO 200 MCG, 200 MCG INHALER
     Route: 055
     Dates: start: 201501

REACTIONS (4)
  - Colitis ischaemic [Unknown]
  - Knee arthroplasty [Unknown]
  - Wheezing [Unknown]
  - Product quality issue [Unknown]

NARRATIVE: CASE EVENT DATE: 2014
